FAERS Safety Report 25648671 (Version 2)
Quarter: 2025Q3

REPORT INFORMATION
  Report Type: Spontaneous
  Country: US (occurrence: US)
  Receive Date: 20250806
  Receipt Date: 20250918
  Transmission Date: 20251021
  Serious: No
  Sender: AMGEN
  Company Number: US-AMGEN-USASP2025137621

PATIENT
  Age: 58 Year
  Sex: Female

DRUGS (14)
  1. OTEZLA [Suspect]
     Active Substance: APREMILAST
     Indication: Psoriasis
     Dosage: 30 MILLIGRAM, QD
     Route: 048
  2. OTEZLA [Suspect]
     Active Substance: APREMILAST
     Indication: Psoriatic arthropathy
     Dosage: 30 MILLIGRAM, BID
     Route: 048
  3. FOLIC ACID [Concomitant]
     Active Substance: FOLIC ACID
  4. FISH OIL [Concomitant]
     Active Substance: FISH OIL
  5. HERBALS\TURMERIC [Concomitant]
     Active Substance: HERBALS\TURMERIC
  6. CALCIUM LACTATE [Concomitant]
     Active Substance: CALCIUM LACTATE
  7. B12 [Concomitant]
  8. BIOTIN [Concomitant]
     Active Substance: BIOTIN
  9. VTAMA [Concomitant]
     Active Substance: TAPINAROF
  10. CLOBETASOL PROPIONATE [Concomitant]
     Active Substance: CLOBETASOL PROPIONATE
  11. BUPROPION [Concomitant]
     Active Substance: BUPROPION
  12. ESCITALOPRAM OXALATE [Concomitant]
     Active Substance: ESCITALOPRAM OXALATE
  13. METHOTREXATE SODIUM [Concomitant]
     Active Substance: METHOTREXATE SODIUM
  14. ROSUVASTATIN CALCIUM [Concomitant]
     Active Substance: ROSUVASTATIN CALCIUM

REACTIONS (4)
  - Off label use [Unknown]
  - Nausea [Unknown]
  - Headache [Unknown]
  - Drug effect less than expected [Unknown]
